FAERS Safety Report 8390281 (Version 2)
Quarter: 2013Q1

REPORT INFORMATION
  Report Type: Report from Study
  Country: US (occurrence: US)
  Receive Date: 20120203
  Receipt Date: 20130103
  Transmission Date: 20140127
  Serious: Yes (Hospitalization)
  Sender: FDA-Public Use
  Company Number: PHHO2011US03621

PATIENT
  Age: 79 Year
  Sex: Male
  Weight: 108 kg

DRUGS (4)
  1. NAPROXEN [Suspect]
     Indication: OSTEOARTHRITIS
  2. OMEPRAZOLE [Suspect]
  3. PLACEBO [Suspect]
  4. METHOTREXATE [Concomitant]
     Indication: RHEUMATOID ARTHRITIS

REACTIONS (2)
  - Epistaxis [Unknown]
  - Concomitant disease progression [Unknown]
